FAERS Safety Report 20696726 (Version 1)
Quarter: 2022Q2

REPORT INFORMATION
  Report Type: Spontaneous
  Country: US (occurrence: US)
  Receive Date: 20220411
  Receipt Date: 20220411
  Transmission Date: 20220721
  Serious: Yes (Other)
  Sender: FDA-Public Use
  Company Number: US-TEVA-2022-US-2025002

PATIENT
  Sex: Female
  Weight: 63.5 kg

DRUGS (3)
  1. QVAR REDIHALER [Suspect]
     Active Substance: BECLOMETHASONE DIPROPIONATE
     Indication: Increased viscosity of bronchial secretion
     Dosage: 40 MCG/DOSE, 2 INHALATIONS TWICE A DAY
     Route: 065
  2. QVAR REDIHALER [Suspect]
     Active Substance: BECLOMETHASONE DIPROPIONATE
     Indication: Asthma
  3. DEVICE [Suspect]
     Active Substance: DEVICE
     Route: 065

REACTIONS (3)
  - Foreign body in throat [Unknown]
  - Incorrect dose administered by device [Unknown]
  - Pharyngeal inflammation [Unknown]
